FAERS Safety Report 20947786 (Version 1)
Quarter: 2022Q2

REPORT INFORMATION
  Report Type: Spontaneous
  Country: FR (occurrence: FR)
  Receive Date: 20220611
  Receipt Date: 20220611
  Transmission Date: 20220721
  Serious: Yes (Hospitalization)
  Sender: FDA-Public Use
  Company Number: None

PATIENT
  Age: 77 Year
  Sex: Female

DRUGS (2)
  1. AMIODARONE [Interacting]
     Active Substance: AMIODARONE
     Indication: Cardiovascular disorder
     Dosage: UNIT DOSE : 200 MG, THERAPY START DATE :  ASKU, FREQUENCY TIME : 1 DAYS
     Route: 048
     Dates: end: 20220420
  2. BISOPROLOL FUMARATE [Interacting]
     Active Substance: BISOPROLOL FUMARATE
     Indication: Cardiovascular disorder
     Dosage: THERAPY START DATE :  ASKU, UNIT DOSE : 7.5 MG, FREQUENCY TIME : 1 DAYS
     Route: 048
     Dates: end: 20220420

REACTIONS (2)
  - Bradycardia [Recovered/Resolved]
  - Drug interaction [Unknown]

NARRATIVE: CASE EVENT DATE: 20220420
